FAERS Safety Report 4966459-6 (Version None)
Quarter: 2006Q2

REPORT INFORMATION
  Report Type: 
  Country: None (occurrence: None)
  Receive Date: 20060407
  Receipt Date: 20060224
  Transmission Date: 20061013
  Serious: Yes (Other)
  Sender: FDA-Public Use
  Company Number: 2006GB00336

PATIENT
  Age: 57 Year
  Sex: Female

DRUGS (3)
  1. PULMICORT TURBOHALER 400 [Suspect]
     Indication: ASTHMA
     Route: 055
     Dates: start: 20050201
  2. TAMOXIFEN CITRATE [Concomitant]
  3. TERBUTALINE SULFATE [Concomitant]
     Dosage: 500 UG TO 2 MG
     Route: 055
     Dates: start: 20050201

REACTIONS (2)
  - CONTUSION [None]
  - SKIN ATROPHY [None]
